FAERS Safety Report 8383136-2 (Version None)
Quarter: 2012Q2

REPORT INFORMATION
  Report Type: 
  Country: None (occurrence: None)
  Receive Date: 20120522
  Receipt Date: 20120511
  Transmission Date: 20120825
  Serious: Yes (Other)
  Sender: FDA-Public Use
  Company Number: AUR-APL-2012-02247

PATIENT
  Age: 80 Year
  Sex: Female
  Weight: 65.7716 kg

DRUGS (2)
  1. LOVASTATIN [Concomitant]
  2. ALENDRONIC ACID (ALENDRONIC ACID) [Suspect]
     Indication: PRODUCT USED FOR UNKNOWN INDICATION
     Dosage: (70 MG, 1 IN 1 WK),ORAL
     Route: 048
     Dates: start: 20060101

REACTIONS (4)
  - SPINAL DISORDER [None]
  - PERICARDIAL EFFUSION [None]
  - DISLOCATION OF VERTEBRA [None]
  - BACK PAIN [None]
